FAERS Safety Report 22164651 (Version 4)
Quarter: 2023Q2

REPORT INFORMATION
  Report Type: Spontaneous
  Country: AR (occurrence: AR)
  Receive Date: 20230403
  Receipt Date: 20230418
  Transmission Date: 20230721
  Serious: Yes (Death, Hospitalization, Other)
  Sender: FDA-Public Use
  Company Number: AR-BoehringerIngelheim-2023-BI-228895

PATIENT
  Age: 85 Year
  Sex: Male

DRUGS (1)
  1. JARDIANCE [Suspect]
     Active Substance: EMPAGLIFLOZIN
     Indication: Cardiac failure
     Dates: start: 2021, end: 2021

REACTIONS (9)
  - Cardiac failure [Fatal]
  - Physical disability [Fatal]
  - Confusional state [Fatal]
  - Depressed mood [Fatal]
  - Renal failure [Fatal]
  - Decreased appetite [Fatal]
  - General physical health deterioration [Fatal]
  - Sepsis [Fatal]
  - Urinary tract infection [Fatal]

NARRATIVE: CASE EVENT DATE: 20210101
